FAERS Safety Report 4374342-2 (Version None)
Quarter: 2004Q2

REPORT INFORMATION
  Report Type: 
  Country: None (occurrence: None)
  Receive Date: 20040604
  Receipt Date: 20040526
  Transmission Date: 20050107
  Serious: Yes (Hospitalization)
  Sender: FDA-Public Use
  Company Number: CIP04001105

PATIENT
  Age: 88 Year
  Sex: Female

DRUGS (6)
  1. MACROBID [Suspect]
     Indication: URINARY TRACT INFECTION
     Dosage: ORAL
     Route: 048
     Dates: start: 20040501
  2. MACRODANTIN [Suspect]
     Indication: PROPHYLAXIS
     Dosage: OFF AND ON , ORAL
     Route: 048
     Dates: end: 20040101
  3. ANTIDEPRESSANTS [Concomitant]
  4. ESTROGEN NOS [Concomitant]
  5. LEVOTHROID [Concomitant]
  6. CLARITIN [Concomitant]

REACTIONS (4)
  - BACTERIAL INFECTION [None]
  - BLOOD PRESSURE INCREASED [None]
  - NEUROLOGICAL SYMPTOM [None]
  - PNEUMONIA [None]
